FAERS Safety Report 5343783-9 (Version None)
Quarter: 2007Q2

REPORT INFORMATION
  Report Type: 
  Country: None (occurrence: None)
  Receive Date: 20070604
  Receipt Date: 20070525
  Transmission Date: 20071010
  Serious: Yes (Hospitalization)
  Sender: FDA-Public Use
  Company Number: DE-AMGEN-UK222304

PATIENT
  Sex: Female

DRUGS (4)
  1. PANITUMUMAB [Suspect]
     Indication: COLORECTAL CANCER
     Route: 042
     Dates: start: 20070425
  2. FLUOROURACIL [Concomitant]
  3. ORAL CONTRACEPTIVE NOS [Concomitant]
  4. IBUPROFEN [Concomitant]

REACTIONS (1)
  - CATHETER THROMBOSIS [None]
